FAERS Safety Report 5533270-7 (Version None)
Quarter: 2007Q4

REPORT INFORMATION
  Report Type: 
  Country: None (occurrence: None)
  Receive Date: 20071204
  Receipt Date: 20071123
  Transmission Date: 20080405
  Serious: Yes (Hospitalization)
  Sender: FDA-Public Use
  Company Number: B0497875A

PATIENT
  Age: 85 Year
  Sex: Female
  Weight: 70 kg

DRUGS (13)
  1. DEROXAT [Suspect]
     Indication: DRUG USE FOR UNKNOWN INDICATION
     Dosage: 20MG TWICE PER DAY
     Route: 048
     Dates: start: 20060601, end: 20070214
  2. RISPERDAL [Suspect]
     Dosage: .5MG AT NIGHT
     Route: 048
     Dates: start: 20061201, end: 20070214
  3. SEREVENT [Concomitant]
     Dosage: 1PUFF TWICE PER DAY
     Route: 055
     Dates: start: 20050101, end: 20070214
  4. BECOTIDE [Concomitant]
     Dosage: 1PUFF TWICE PER DAY
     Route: 055
     Dates: start: 20050101, end: 20070214
  5. XANAX [Concomitant]
     Dosage: .25MG THREE TIMES PER DAY
     Route: 048
     Dates: start: 20050101, end: 20070214
  6. DIAMICRON [Concomitant]
     Dosage: 30MG IN THE MORNING
     Route: 048
     Dates: start: 20050101, end: 20070214
  7. RAMIPRIL [Concomitant]
     Dosage: 2.5MG IN THE MORNING
     Route: 048
     Dates: start: 20050101, end: 20070214
  8. LASIX [Concomitant]
     Dosage: 20MG IN THE MORNING
     Route: 048
     Dates: start: 20050101, end: 20070214
  9. INEXIUM [Concomitant]
     Dosage: 20MG AT NIGHT
     Route: 048
     Dates: start: 20050101, end: 20070214
  10. VITAMIN B-12 [Concomitant]
     Dosage: 1DROP TWICE PER DAY
     Route: 047
     Dates: start: 20050101, end: 20070214
  11. CHONDROITINE SULFATE SODIUM [Concomitant]
     Dosage: 1DROP TWICE PER DAY
     Route: 047
     Dates: start: 20050101, end: 20070214
  12. KARDEGIC [Concomitant]
     Dosage: 75MG AT NIGHT
     Route: 048
     Dates: start: 20050101, end: 20070214
  13. DIMETICONE [Concomitant]
     Dosage: 1DROP THREE TIMES PER DAY
     Route: 047
     Dates: start: 20050101, end: 20070214

REACTIONS (14)
  - ASTHMA [None]
  - CARDIAC FAILURE CONGESTIVE [None]
  - COUGH [None]
  - DECREASED APPETITE [None]
  - DISEASE PROGRESSION [None]
  - DRUG INTERACTION [None]
  - DYSPNOEA AT REST [None]
  - GENERAL PHYSICAL HEALTH DETERIORATION [None]
  - HYPERCAPNIA [None]
  - NAUSEA [None]
  - OEDEMA PERIPHERAL [None]
  - RALES [None]
  - RENAL FAILURE [None]
  - SOMNOLENCE [None]
